FAERS Safety Report 10683954 (Version 2)
Quarter: 2017Q4

REPORT INFORMATION
  Report Type: Report from Study
  Country: US (occurrence: US)
  Receive Date: 20141230
  Receipt Date: 20171212
  Transmission Date: 20180320
  Serious: Yes (Other)
  Sender: FDA-Public Use
  Company Number: US-ACTELION-A-NJ2014-110260

PATIENT
  Age: 56 Year
  Sex: Female
  Weight: 99.77 kg

DRUGS (6)
  1. COUMADIN [Concomitant]
     Active Substance: WARFARIN SODIUM
  2. TYVASO [Concomitant]
     Active Substance: TREPROSTINIL
  3. ADEMPAS [Concomitant]
     Active Substance: RIOCIGUAT
  4. ELIQUIS [Concomitant]
     Active Substance: APIXABAN
  5. TRACLEER [Suspect]
     Active Substance: BOSENTAN
     Indication: PULMONARY ARTERIAL HYPERTENSION
     Dosage: 125 MG, BID
     Route: 048
  6. SILDENAFIL. [Concomitant]
     Active Substance: SILDENAFIL

REACTIONS (7)
  - Intervertebral disc protrusion [Unknown]
  - Road traffic accident [Unknown]
  - Brain injury [Unknown]
  - Osteoarthritis [Unknown]
  - Intracranial aneurysm [Unknown]
  - Tooth extraction [Unknown]
  - Cough [Unknown]

NARRATIVE: CASE EVENT DATE: 201708
